FAERS Safety Report 23296016 (Version 1)
Quarter: 2023Q4

REPORT INFORMATION
  Report Type: Spontaneous
  Country: CA (occurrence: None)
  Receive Date: 20231213
  Receipt Date: 20231213
  Transmission Date: 20240109
  Serious: Yes (Disabling)
  Sender: FDA-Public Use
  Company Number: None

PATIENT
  Age: 68 Year
  Sex: Male
  Weight: 67.5 kg

DRUGS (7)
  1. NEUPRO [Suspect]
     Active Substance: ROTIGOTINE
     Indication: Parkinson^s disease
     Dosage: OTHER QUANTITY : 1 2MG;?FREQUENCY : DAILY;?
     Route: 062
     Dates: start: 20230215, end: 20231211
  2. METFORMIN [Concomitant]
     Active Substance: METFORMIN HYDROCHLORIDE
  3. Novsac [Concomitant]
  4. CANDESARTAN [Concomitant]
     Active Substance: CANDESARTAN
  5. CRESTOR [Concomitant]
     Active Substance: ROSUVASTATIN CALCIUM
  6. VITAMINS [Concomitant]
     Active Substance: VITAMINS
  7. ASPIRIN [Concomitant]
     Active Substance: ASPIRIN

REACTIONS (8)
  - Rash [None]
  - Pruritus [None]
  - Drug ineffective [None]
  - Stiff leg syndrome [None]
  - Decreased activity [None]
  - Therapy cessation [None]
  - Withdrawal syndrome [None]
  - Dyskinesia [None]
